FAERS Safety Report 13746371 (Version 1)
Quarter: 2017Q3

REPORT INFORMATION
  Report Type: Report from Study
  Country: None (occurrence: US)
  Receive Date: 20170712
  Receipt Date: 20170712
  Transmission Date: 20171127
  Serious: No
  Sender: FDA-Public Use
  Company Number: US-IPSEN BIOPHARMACEUTICALS, INC.-2014-1725

PATIENT
  Sex: Female

DRUGS (4)
  1. INSULIN [Concomitant]
     Active Substance: INSULIN NOS
     Indication: PRODUCT USED FOR UNKNOWN INDICATION
     Dosage: NOT REPORTED
     Route: 065
  2. SOMATULINE DEPOT [Suspect]
     Active Substance: LANREOTIDE ACETATE
     Indication: ACROMEGALY
     Dosage: 90 MG
     Route: 058
     Dates: start: 20120713
  3. UNSPECIFIED BLOOD PRESSURE PILLS [Concomitant]
     Indication: PRODUCT USED FOR UNKNOWN INDICATION
     Dosage: NOT REPORTED
     Route: 065
  4. ARIMIDEX [Concomitant]
     Active Substance: ANASTROZOLE
     Indication: BREAST CANCER
     Dosage: NOT REPORTED
     Route: 065

REACTIONS (4)
  - Hot flush [Not Recovered/Not Resolved]
  - Back pain [Unknown]
  - Blood glucose decreased [None]
  - Abdominal pain upper [None]
